FAERS Safety Report 22588447 (Version 1)
Quarter: 2023Q2

REPORT INFORMATION
  Report Type: Spontaneous
  Country: TH (occurrence: TH)
  Receive Date: 20230612
  Receipt Date: 20230612
  Transmission Date: 20230722
  Serious: Yes (Hospitalization, Other)
  Sender: FDA-Public Use
  Company Number: TH-BoehringerIngelheim-2023-BI-243151

PATIENT
  Sex: Male

DRUGS (2)
  1. EMPAGLIFLOZIN [Suspect]
     Active Substance: EMPAGLIFLOZIN
     Indication: Product used for unknown indication
     Dosage: EMPAGLIFLOZIN HAS BEEN USED FOR YEARS. EMPAGLIFLOZIN WAS WITHHELD 1 DAY BEFORE HEPATIC SURGERY.
  2. EMPAGLIFLOZIN [Suspect]
     Active Substance: EMPAGLIFLOZIN
     Dosage: EMPAGLIFLOZIN HAS BEEN RESTARTED 5 DAYS AFTER HEPATIC SURGERY.

REACTIONS (2)
  - Liver operation [Unknown]
  - Euglycaemic diabetic ketoacidosis [Recovered/Resolved]
